FAERS Safety Report 4650936-1 (Version None)
Quarter: 2005Q2

REPORT INFORMATION
  Report Type: 
  Country: None (occurrence: None)
  Receive Date: 20050503
  Receipt Date: 20050421
  Transmission Date: 20051028
  Serious: Yes (Other)
  Sender: FDA-Public Use
  Company Number: US-GLAXOSMITHKLINE-A0555171A

PATIENT
  Age: 22 Year
  Sex: Male
  Weight: 104.5 kg

DRUGS (7)
  1. NICODERM CQ [Suspect]
     Route: 062
     Dates: start: 20050414, end: 20050421
  2. GEODON [Concomitant]
     Dosage: 80MG TWICE PER DAY
     Route: 048
  3. SEROQUEL [Concomitant]
     Dosage: 200MG PER DAY
     Route: 048
  4. ABILIFY [Concomitant]
     Dosage: 15MG THREE TIMES PER DAY
     Route: 048
  5. LORAZEPAM [Concomitant]
     Dosage: 3MG THREE TIMES PER DAY
     Route: 048
  6. COGENTIN [Concomitant]
     Dosage: 1MG PER DAY
     Route: 048
  7. TOPAMAX [Concomitant]
     Dosage: 100MG PER DAY
     Route: 048

REACTIONS (8)
  - AGGRESSION [None]
  - APATHY [None]
  - DISORIENTATION [None]
  - FEAR [None]
  - FEELING OF DESPAIR [None]
  - INTENTIONAL MISUSE [None]
  - SOMNOLENCE [None]
  - THINKING ABNORMAL [None]
